FAERS Safety Report 5645284-7 (Version None)
Quarter: 2008Q1

REPORT INFORMATION
  Report Type: 
  Country: None (occurrence: None)
  Receive Date: 20080229
  Receipt Date: 20080219
  Transmission Date: 20080703
  Serious: Yes (Other)
  Sender: FDA-Public Use
  Company Number: GB-ROCHE-548542

PATIENT
  Age: 47 Year
  Sex: Female
  Weight: 111.1 kg

DRUGS (4)
  1. ORLISTAT [Suspect]
     Indication: OBESITY
     Route: 048
     Dates: start: 20070702
  2. ACETAMINOPHEN [Concomitant]
     Indication: OSTEOARTHRITIS
     Route: 048
  3. TRAMADOL HCL [Concomitant]
     Indication: OSTEOARTHRITIS
     Route: 048
  4. DICLOFENAC SODIUM [Concomitant]
     Indication: PAIN
     Dosage: INDICATION: PAIN FROM A CAR ACCIDENT 1.5 YEARS AGO.
     Route: 048

REACTIONS (1)
  - HYSTERECTOMY [None]
